FAERS Safety Report 7002357-4 (Version None)
Quarter: 2010Q3

REPORT INFORMATION
  Report Type: 
  Country: None (occurrence: None)
  Receive Date: 20100920
  Receipt Date: 20100713
  Transmission Date: 20110219
  Serious: Yes (Other)
  Sender: FDA-Public Use
  Company Number: US-ASTRAZENECA-2007UW17262

PATIENT
  Age: 16544 Day
  Sex: Female

DRUGS (9)
  1. SEROQUEL [Suspect]
     Indication: BIPOLAR DISORDER
     Route: 048
     Dates: start: 20040413
  2. SEROQUEL [Suspect]
     Route: 048
     Dates: start: 20040421
  3. ELAVIL [Concomitant]
     Indication: INSOMNIA
     Dosage: 25 M
     Dates: start: 20040413
  4. LANTUS [Concomitant]
     Dosage: 10 UNITS HS
     Dates: start: 20090401
  5. PREVACID [Concomitant]
     Dates: start: 20040413
  6. NAPROXEN [Concomitant]
     Dates: start: 20040413
  7. ESTRADIOL [Concomitant]
     Dates: start: 20040514
  8. ZYRTEC [Concomitant]
     Dates: start: 20040629
  9. CRESTOR [Concomitant]
     Dates: start: 20040719

REACTIONS (4)
  - DIABETES MELLITUS [None]
  - DIABETIC KETOACIDOSIS [None]
  - HYPOGLYCAEMIA [None]
  - PANCREATITIS [None]
